FAERS Safety Report 7736750-9 (Version None)
Quarter: 2011Q3

REPORT INFORMATION
  Report Type: 
  Country: None (occurrence: None)
  Receive Date: 20110902
  Receipt Date: 20110818
  Transmission Date: 20111222
  Serious: Yes (Other)
  Sender: FDA-Public Use
  Company Number: 2011P1008406

PATIENT
  Age: 37 Year
  Sex: Female
  Weight: 86.1834 kg

DRUGS (5)
  1. CLOMIPRAMINE HCL [Suspect]
     Indication: DRUG DISPENSING ERROR
     Dosage: 50 MG;5 DAYS EVERY  MONTH; PO
     Route: 046
     Dates: start: 20110601, end: 20110815
  2. FIORICET [Concomitant]
  3. BUTALBITAL [Concomitant]
  4. FOLIC ACID [Concomitant]
  5. ACETAMINOPHEN AND CAFFEINE [Concomitant]

REACTIONS (8)
  - FATIGUE [None]
  - DIZZINESS [None]
  - LIVER FUNCTION TEST ABNORMAL [None]
  - NAUSEA [None]
  - DRUG DISPENSING ERROR [None]
  - HEADACHE [None]
  - WRONG DRUG ADMINISTERED [None]
  - DYSGEUSIA [None]
